FAERS Safety Report 19723909 (Version 2)
Quarter: 2021Q3

REPORT INFORMATION
  Report Type: Spontaneous
  Country: IE (occurrence: IE)
  Receive Date: 20210819
  Receipt Date: 20210907
  Transmission Date: 20211014
  Serious: Yes (Other)
  Sender: FDA-Public Use
  Company Number: IE-TEVA-2021-IE-1942604

PATIENT
  Sex: Female

DRUGS (7)
  1. ELTROXIN 100 MICROGRAM TABLET [Concomitant]
     Dosage: 100 MCG
  2. EUMOVATE [Concomitant]
     Active Substance: CLOBETASONE BUTYRATE
     Indication: WOUND
     Dosage: 2?3 TIMES PER WEEK
     Dates: start: 202107
  3. AMOXICILLIN. [Suspect]
     Active Substance: AMOXICILLIN
     Indication: HELICOBACTER INFECTION
     Dosage: 500 MG
     Dates: start: 202107
  4. BETNOVATE OINTMENT 0.1% W/W [Concomitant]
     Indication: WOUND
     Dosage: 2?3 TIMES PER WEEK
     Dates: start: 202107
  5. ESOMEPRAZOLE KRKA (ESOMEPRAZOLE) [Suspect]
     Active Substance: ESOMEPRAZOLE
     Indication: HELICOBACTER INFECTION
     Dosage: 40 MG
     Dates: start: 202107
  6. BETNOVATE OINTMENT 0.1% W/W [Concomitant]
     Indication: RASH
  7. CLARITHROMYCIN TEVA [Suspect]
     Active Substance: CLARITHROMYCIN
     Indication: HELICOBACTER INFECTION
     Dosage: 500 MG
     Dates: start: 202107

REACTIONS (7)
  - Nervousness [Recovered/Resolved]
  - Aggression [Recovered/Resolved]
  - Anxiety [Recovered/Resolved]
  - Thinking abnormal [Recovered/Resolved]
  - Delirium [Recovered/Resolved]
  - Feeling abnormal [Recovered/Resolved]
  - Screaming [Recovered/Resolved]

NARRATIVE: CASE EVENT DATE: 202107
